FAERS Safety Report 10962762 (Version 2)
Quarter: 2015Q2

REPORT INFORMATION
  Report Type: Spontaneous
  Country: US (occurrence: US)
  Receive Date: 20150327
  Receipt Date: 20150609
  Transmission Date: 20150821
  Serious: Yes (Other)
  Sender: FDA-Public Use
  Company Number: US-GLAXOSMITHKLINE-US2015037492

PATIENT
  Age: 75 Year
  Sex: Female

DRUGS (1)
  1. ADVAIR DISKUS [Suspect]
     Active Substance: FLUTICASONE PROPIONATE\SALMETEROL XINAFOATE
     Indication: PRODUCT USED FOR UNKNOWN INDICATION
     Dosage: UNK
     Dates: start: 201003

REACTIONS (4)
  - Respiratory distress [Unknown]
  - Device use error [Unknown]
  - Dyspnoea [Unknown]
  - Medication error [Unknown]

NARRATIVE: CASE EVENT DATE: 20150319
